FAERS Safety Report 8139595-3 (Version None)
Quarter: 2012Q1

REPORT INFORMATION
  Report Type: 
  Country: None (occurrence: None)
  Receive Date: 20120215
  Receipt Date: 20120202
  Transmission Date: 20120608
  Serious: Yes (Other)
  Sender: FDA-Public Use
  Company Number: PHFR2012GB000979

PATIENT
  Sex: Male

DRUGS (2)
  1. CLOZARIL [Suspect]
     Indication: SCHIZOPHRENIA
     Dosage: 500 MG, UNK
     Route: 048
     Dates: start: 20060712
  2. CLOZARIL [Suspect]
     Dosage: 1000 MG, UNK
     Route: 048
     Dates: start: 20060712

REACTIONS (1)
  - INCORRECT DOSE ADMINISTERED [None]
